FAERS Safety Report 4358515-0 (Version None)
Quarter: 2004Q2

REPORT INFORMATION
  Report Type: 
  Country: None (occurrence: None)
  Receive Date: 20040514
  Receipt Date: 20040504
  Transmission Date: 20050107
  Serious: Yes (Hospitalization)
  Sender: FDA-Public Use
  Company Number: FR-GLAXOSMITHKLINE-B0331900A

PATIENT
  Age: 30 Month
  Sex: Female

DRUGS (5)
  1. ZIAGEN [Suspect]
     Indication: HIV INFECTION
  2. RETROVIR [Suspect]
     Indication: ANTIVIRAL PROPHYLAXIS
     Route: 048
  3. VIRAMUNE [Suspect]
     Indication: HIV INFECTION
  4. VIRACEPT [Suspect]
     Indication: HIV INFECTION
  5. COTRIMOXAZOLE [Concomitant]
     Indication: DRUG EXPOSURE DURING PREGNANCY

REACTIONS (7)
  - ANAEMIA [None]
  - ANAEMIA NEONATAL [None]
  - DRUG EXPOSURE DURING PREGNANCY [None]
  - EPENDYMOMA [None]
  - NEUTROPENIA [None]
  - NEUTROPENIA NEONATAL [None]
  - PREGNANCY [None]
